FAERS Safety Report 17762580 (Version 1)
Quarter: 2020Q2

REPORT INFORMATION
  Report Type: Spontaneous
  Country: US (occurrence: US)
  Receive Date: 20200508
  Receipt Date: 20200508
  Transmission Date: 20200714
  Serious: Yes (Hospitalization)
  Sender: FDA-Public Use
  Company Number: US-CELGENEUS-USA-20181004371

PATIENT
  Age: 79 Year
  Sex: Male
  Weight: 59.7 kg

DRUGS (20)
  1. ALLOPURINOL. [Concomitant]
     Active Substance: ALLOPURINOL
     Dosage: 200 MILLIGRAM
     Route: 048
     Dates: start: 20181009
  2. TYLENOL [Concomitant]
     Active Substance: ACETAMINOPHEN
     Indication: PROPHYLAXIS
  3. VIDAZA [Suspect]
     Active Substance: AZACITIDINE
     Indication: ACUTE MYELOID LEUKAEMIA
     Dosage: 75 MILLIGRAM/SQ. METER
     Route: 041
     Dates: start: 20180521
  4. VENETOCLAX (VERUM) [Concomitant]
     Dosage: 200 MILLIGRAM
     Route: 048
     Dates: start: 20180814
  5. ACYCLOVIR. [Concomitant]
     Active Substance: ACYCLOVIR
     Indication: ANTIVIRAL TREATMENT
     Dosage: 800 MILLIGRAM
     Route: 048
     Dates: start: 20180522
  6. VICODIN [Concomitant]
     Active Substance: ACETAMINOPHEN\HYDROCODONE BITARTRATE
     Dosage: 5 MILLIGRAM
     Route: 048
     Dates: start: 20180528
  7. VENETOCLAX (VERUM) [Concomitant]
     Indication: ACUTE MYELOID LEUKAEMIA
     Dosage: 100 MILLIGRAM
     Route: 048
     Dates: start: 20180521, end: 20180521
  8. VENETOCLAX (VERUM) [Concomitant]
     Dosage: 200 MILLIGRAM
     Route: 048
     Dates: start: 20180522, end: 20180522
  9. MULTIPLE VITAMINS [Concomitant]
     Active Substance: VITAMINS
     Indication: SUPPLEMENTATION THERAPY
     Route: 048
     Dates: start: 2018
  10. ZOFRAN [Concomitant]
     Active Substance: ONDANSETRON HYDROCHLORIDE
     Dosage: 8 MILLIGRAM
     Route: 048
     Dates: start: 20180528
  11. CRESEMBA [Concomitant]
     Active Substance: ISAVUCONAZONIUM SULFATE
     Indication: ANTIFUNGAL PROPHYLAXIS
     Dosage: 372 MILLIGRAM
     Route: 048
     Dates: start: 20180813
  12. LEVAQUIN [Concomitant]
     Active Substance: LEVOFLOXACIN
     Indication: ANTIBIOTIC PROPHYLAXIS
     Dosage: 500 MILLIGRAM
     Route: 048
     Dates: start: 20180602
  13. VICODIN [Concomitant]
     Active Substance: ACETAMINOPHEN\HYDROCODONE BITARTRATE
     Indication: BACK PAIN
     Dosage: 5-300 MILLIGRAM
     Route: 048
     Dates: start: 20180528
  14. ALLOPURINOL. [Concomitant]
     Active Substance: ALLOPURINOL
     Indication: TUMOUR LYSIS SYNDROME
     Dosage: 200 MILLIGRAM
     Route: 048
     Dates: start: 20180519, end: 20180723
  15. ALLOPURINOL. [Concomitant]
     Active Substance: ALLOPURINOL
     Indication: PROPHYLAXIS
     Dosage: 200 MILLIGRAM
     Route: 048
     Dates: start: 20180810, end: 20180913
  16. NORMAL SALINE [Concomitant]
     Active Substance: SODIUM CHLORIDE
     Indication: PROPHYLAXIS
     Dosage: 125 MILLILITER
     Route: 041
     Dates: start: 20180521, end: 20180528
  17. TYLENOL [Concomitant]
     Active Substance: ACETAMINOPHEN
     Indication: ARTHRALGIA
     Dosage: 650 MILLIGRAM
     Route: 048
     Dates: start: 20180515
  18. VENETOCLAX (VERUM) [Concomitant]
     Dosage: 400 MILLIGRAM
     Route: 048
     Dates: start: 20180523, end: 20180813
  19. ZOFRAN [Concomitant]
     Active Substance: ONDANSETRON HYDROCHLORIDE
     Indication: NAUSEA
     Route: 048
  20. ZOFRAN [Concomitant]
     Active Substance: ONDANSETRON HYDROCHLORIDE
     Dosage: 16 MILLIGRAM
     Route: 065
     Dates: start: 20180517

REACTIONS (1)
  - Vascular device infection [Recovered/Resolved]

NARRATIVE: CASE EVENT DATE: 20181004
